FAERS Safety Report 18580505 (Version 1)
Quarter: 2020Q4

REPORT INFORMATION
  Report Type: Spontaneous
  Country: US (occurrence: US)
  Receive Date: 20201204
  Receipt Date: 20201204
  Transmission Date: 20210114
  Serious: Yes (Life-Threatening, Disabling)
  Sender: FDA-Public Use
  Company Number: US-AMERICAN REGENT INC-2020002578

PATIENT
  Sex: Female

DRUGS (7)
  1. INJECTAFER [Suspect]
     Active Substance: FERRIC CARBOXYMALTOSE
     Dosage: UNK, SINGLE
     Dates: start: 2017, end: 2017
  2. INJECTAFER [Suspect]
     Active Substance: FERRIC CARBOXYMALTOSE
     Indication: IRON DEFICIENCY ANAEMIA
     Dosage: UNK, SINGLE
     Dates: start: 20151022, end: 20151022
  3. INJECTAFER [Suspect]
     Active Substance: FERRIC CARBOXYMALTOSE
     Dosage: UNK, SINGLE
     Dates: start: 2017, end: 2017
  4. INJECTAFER [Suspect]
     Active Substance: FERRIC CARBOXYMALTOSE
     Dosage: UNK, SINGLE
     Dates: start: 201710, end: 201710
  5. INJECTAFER [Suspect]
     Active Substance: FERRIC CARBOXYMALTOSE
     Dosage: UNK, SINGLE
     Dates: start: 2017, end: 2017
  6. INJECTAFER [Suspect]
     Active Substance: FERRIC CARBOXYMALTOSE
     Dosage: UNK,SINGLE
     Dates: start: 201709, end: 201709
  7. INJECTAFER [Suspect]
     Active Substance: FERRIC CARBOXYMALTOSE
     Dosage: UNK, SINGLE
     Dates: start: 2017, end: 2017

REACTIONS (14)
  - Arthralgia [Unknown]
  - Asthenia [Unknown]
  - Dry skin [Unknown]
  - Hypophosphataemia [Unknown]
  - Product quality issue [Unknown]
  - Anhedonia [Unknown]
  - Anxiety [Unknown]
  - Eye pain [Unknown]
  - Pain [Unknown]
  - Malaise [Unknown]
  - Emotional distress [Unknown]
  - Feeling abnormal [Unknown]
  - Amnesia [Unknown]
  - Headache [Unknown]
